FAERS Safety Report 4430229-8 (Version None)
Quarter: 2004Q3

REPORT INFORMATION
  Report Type: 
  Country: None (occurrence: None)
  Receive Date: 20040818
  Receipt Date: 20040803
  Transmission Date: 20050211
  Serious: Yes (Hospitalization, Other)
  Sender: FDA-Public Use
  Company Number: 04-00463

PATIENT
  Age: 46 Year
  Sex: Male

DRUGS (5)
  1. ERYTHROMYCIN ETHYLSUCCINATE [Suspect]
     Dosage: 500MG, EVERY 6 HOURS, ORAL
     Route: 048
  2. ERYTHROMYCIN ESTOLATE [Suspect]
     Dosage: 500MG, EVERY 6 HOURS, ORAL
     Route: 048
  3. ERYTHROMYCIN ESTOLATE [Suspect]
     Dosage: 500MG, EVERY 6 HOURS, ORAL
     Route: 048
  4. VANCOMYCIN [Concomitant]
  5. RIFAMPIN [Concomitant]

REACTIONS (11)
  - BACK PAIN [None]
  - CARDIAC MURMUR [None]
  - CARDIAC VALVE VEGETATION [None]
  - HYPOAESTHESIA [None]
  - MASS [None]
  - MENINGEAL DISORDER [None]
  - NECK PAIN [None]
  - PARAESTHESIA [None]
  - PATHOGEN RESISTANCE [None]
  - POST PROCEDURAL PAIN [None]
  - STREPTOCOCCAL BACTERAEMIA [None]
